FAERS Safety Report 7634589-6 (Version None)
Quarter: 2011Q3

REPORT INFORMATION
  Report Type: 
  Country: None (occurrence: None)
  Receive Date: 20110725
  Receipt Date: 20110722
  Transmission Date: 20111222
  Serious: Yes (Hospitalization, Other)
  Sender: FDA-Public Use
  Company Number: RU-ABBOTT-10P-251-0691513-00

PATIENT
  Sex: Female

DRUGS (4)
  1. EPIVIR [Suspect]
     Indication: PRODUCT USED FOR UNKNOWN INDICATION
     Dates: start: 20101029, end: 20101101
  2. EPIVIR [Concomitant]
     Dosage: 1 TABLET, BID, 0.3 DAILY
     Dates: start: 20101029, end: 20101128
  3. NICAVIR [Concomitant]
     Indication: PRODUCT USED FOR UNKNOWN INDICATION
     Dosage: 2 TABLETS, BID, 0.8 DAILY
     Route: 048
     Dates: start: 20101029, end: 20101128
  4. KALETRA [Suspect]
     Indication: PRODUCT USED FOR UNKNOWN INDICATION
     Dosage: 2 TABLETS, BID
     Route: 048
     Dates: start: 20101029, end: 20101101

REACTIONS (5)
  - HEPATIC ENZYME INCREASED [None]
  - ASTHENIA [None]
  - HEPATOTOXICITY [None]
  - HEPATOSPLENOMEGALY [None]
  - DYSPEPSIA [None]
